FAERS Safety Report 8263369-6 (Version None)
Quarter: 2012Q2

REPORT INFORMATION
  Report Type: 
  Country: None (occurrence: None)
  Receive Date: 20120405
  Receipt Date: 20120328
  Transmission Date: 20120825
  Serious: Yes (Other)
  Sender: FDA-Public Use
  Company Number: US-ABBOTT-12P-163-0920121-00

PATIENT
  Sex: Female
  Weight: 113.5 kg

DRUGS (1)
  1. HUMIRA [Suspect]
     Indication: SARCOIDOSIS
     Dates: start: 20120201

REACTIONS (7)
  - PULMONARY EMBOLISM [None]
  - HYPERSENSITIVITY [None]
  - PALPITATIONS [None]
  - NEUROPATHY PERIPHERAL [None]
  - HYPERTENSION [None]
  - OFF LABEL USE [None]
  - BLOOD GLUCOSE INCREASED [None]
